FAERS Safety Report 12009252 (Version 2)
Quarter: 2016Q1

REPORT INFORMATION
  Report Type: Spontaneous
  Country: FI (occurrence: FI)
  Receive Date: 20160205
  Receipt Date: 20160208
  Transmission Date: 20160526
  Serious: Yes (Other)
  Sender: FDA-Public Use
  Company Number: FI-ROCHE-1705284

PATIENT
  Sex: Female

DRUGS (3)
  1. HERCEPTIN [Suspect]
     Active Substance: TRASTUZUMAB
     Indication: METASTATIC NEOPLASM
     Dosage: 8TH CYCLE
     Route: 058
     Dates: start: 20150505, end: 20150908
  2. HERCEPTIN [Suspect]
     Active Substance: TRASTUZUMAB
     Indication: METASTATIC NEOPLASM
     Dosage: MAINTENANCE THERAPY, TOTALLY 7 CYCLES
     Route: 042
     Dates: start: 20141229, end: 2015
  3. SIBICORT [Concomitant]
     Indication: RASH
     Route: 065

REACTIONS (1)
  - Injection site erythema [Unknown]
